FAERS Safety Report 15290269 (Version 1)
Quarter: 2018Q3

REPORT INFORMATION
  Report Type: Spontaneous
  Country: GR (occurrence: GR)
  Receive Date: 20180817
  Receipt Date: 20180817
  Transmission Date: 20181010
  Serious: Yes (Disabling)
  Sender: FDA-Public Use
  Company Number: GR-TEVA-2018-GR-944733

PATIENT
  Age: 68 Year
  Sex: Female
  Weight: 75 kg

DRUGS (3)
  1. EZETIMIBE. [Suspect]
     Active Substance: EZETIMIBE
     Route: 048
     Dates: start: 201803, end: 201807
  2. ROSUVASTATIN. [Suspect]
     Active Substance: ROSUVASTATIN
     Route: 048
     Dates: start: 201706, end: 201803
  3. ATORVASTATIN [Suspect]
     Active Substance: ATORVASTATIN
     Route: 048
     Dates: start: 201106, end: 201604

REACTIONS (6)
  - Fatigue [Unknown]
  - Depression [Unknown]
  - Asthenia [Unknown]
  - Mood altered [Unknown]
  - Myalgia [Unknown]
  - Headache [Unknown]

NARRATIVE: CASE EVENT DATE: 201106
